FAERS Safety Report 24336168 (Version 1)
Quarter: 2024Q3

REPORT INFORMATION
  Report Type: Report from Study
  Country: ID (occurrence: ID)
  Receive Date: 20240919
  Receipt Date: 20240919
  Transmission Date: 20241016
  Serious: No
  Sender: ROCHE
  Company Number: ID-ROCHE-3427268

PATIENT
  Age: 54 Year
  Sex: Male

DRUGS (14)
  1. OSELTAMIVIR [Suspect]
     Active Substance: OSELTAMIVIR
     Indication: COVID-19
     Route: 065
  2. LANSOPRAZOLE [Concomitant]
     Active Substance: LANSOPRAZOLE
  3. ZINC [Concomitant]
     Active Substance: ZINC
  4. AZITROMISIN [Concomitant]
  5. DOMPERIDONE [Concomitant]
     Active Substance: DOMPERIDONE
  6. HEPARIN [Concomitant]
     Active Substance: HEPARIN SODIUM
  7. CEFTRIAXONE [Concomitant]
     Active Substance: CEFTRIAXONE\CEFTRIAXONE SODIUM
  8. LEVOFLOKSASIN [Concomitant]
  9. OMEPRAZOLE [Concomitant]
     Active Substance: OMEPRAZOLE
  10. ONDANSETRON [Concomitant]
     Active Substance: ONDANSETRON
  11. LORAZEPAM [Concomitant]
     Active Substance: LORAZEPAM
  12. PHYTONADIONE [Concomitant]
     Active Substance: PHYTONADIONE
  13. RAMIPRIL [Concomitant]
     Active Substance: RAMIPRIL
  14. VOLTAREN [Concomitant]
     Active Substance: DICLOFENAC SODIUM

REACTIONS (3)
  - Off label use [Unknown]
  - Nausea [Unknown]
  - Insomnia [Unknown]
